FAERS Safety Report 7948409-3 (Version None)
Quarter: 2011Q4

REPORT INFORMATION
  Report Type: 
  Country: None (occurrence: None)
  Receive Date: 20111123
  Receipt Date: 20111116
  Transmission Date: 20120403
  Serious: Yes (Hospitalization)
  Sender: FDA-Public Use
  Company Number: CIP11002402

PATIENT
  Age: 80 Year
  Sex: Male

DRUGS (2)
  1. ACTONEL [Suspect]
     Dosage: 150 MG, ONCE A MONTH, ORAL
     Route: 048
     Dates: start: 20100207
  2. MULTIVITAMIN /00831701/ (VITAMINS NOS) [Concomitant]

REACTIONS (1)
  - HAEMOGLOBIN DECREASED [None]
